FAERS Safety Report 7400754-6 (Version None)
Quarter: 2011Q2

REPORT INFORMATION
  Report Type: 
  Country: None (occurrence: None)
  Receive Date: 20110407
  Receipt Date: 20110331
  Transmission Date: 20111010
  Serious: Yes (Other)
  Sender: FDA-Public Use
  Company Number: A0920899A

PATIENT
  Age: 52 Year
  Sex: Male

DRUGS (9)
  1. PREDNISONE [Concomitant]
  2. HYDROXYZINE [Concomitant]
  3. METFORMIN HCL [Concomitant]
  4. GLYBURIDE [Concomitant]
  5. FLOVENT [Suspect]
     Dosage: 2PUFF TWICE PER DAY
     Route: 055
     Dates: start: 20110101
  6. IBUPROFEN [Concomitant]
  7. HYDROCODONE [Concomitant]
  8. PROAIR HFA [Concomitant]
  9. ZITHROMAX [Concomitant]

REACTIONS (2)
  - RESPIRATORY DISORDER [None]
  - PRODUCT QUALITY ISSUE [None]
